FAERS Safety Report 24558600 (Version 1)
Quarter: 2024Q4

REPORT INFORMATION
  Report Type: Spontaneous
  Country: JP (occurrence: JP)
  Receive Date: 20241029
  Receipt Date: 20241029
  Transmission Date: 20250115
  Serious: Yes (Other)
  Sender: JOHNSON AND JOHNSON
  Company Number: JP-JNJFOC-20241074723

PATIENT
  Age: 5 Decade
  Sex: Female

DRUGS (3)
  1. INVEGA [Suspect]
     Active Substance: PALIPERIDONE
     Indication: Product used for unknown indication
     Route: 048
     Dates: start: 202409
  2. RISPERDAL [Suspect]
     Active Substance: RISPERIDONE
     Indication: Product used for unknown indication
     Dosage: DOSE UNKNOWNAT NIGHTP.R.N
     Route: 048
  3. RISPERDAL [Suspect]
     Active Substance: RISPERIDONE
     Dosage: DOSE UNKNOWNAT NIGHTP.R.NDECREASED
     Route: 048
     Dates: start: 2024

REACTIONS (3)
  - Suicidal ideation [Unknown]
  - Hostility [Unknown]
  - Off label use [Unknown]

NARRATIVE: CASE EVENT DATE: 20240101
